FAERS Safety Report 9194693 (Version 1)
Quarter: 2013Q1

REPORT INFORMATION
  Report Type: Spontaneous
  Country: None (occurrence: US)
  Receive Date: 20130327
  Receipt Date: 20130327
  Transmission Date: 20140127
  Serious: No
  Sender: FDA-Public Use
  Company Number: US-ALLERGAN-1207072US

PATIENT
  Age: 66 Year
  Sex: Female

DRUGS (6)
  1. LATISSE 0.03% [Suspect]
     Indication: GROWTH OF EYELASHES
     Dosage: 2 GTT, QHS
     Route: 061
     Dates: start: 20120515, end: 20120517
  2. REFRESH CLASSIC [Concomitant]
     Indication: CONTACT LENS THERAPY
     Dosage: 2 GTT, QAM
     Route: 047
  3. SYSTANE [Concomitant]
     Indication: PRODUCT USED FOR UNKNOWN INDICATION
     Dosage: 2 GTT, QHS
     Route: 047
  4. HRT [Concomitant]
     Indication: HORMONE REPLACEMENT THERAPY
     Dosage: UNK
     Route: 048
  5. HOMEOPATHIC ALLERGY MEDICATION [Concomitant]
     Indication: SEASONAL ALLERGY
     Dosage: UNK
     Route: 048
  6. VITAMINS [Concomitant]
     Indication: SUPPLEMENTATION THERAPY
     Dosage: UNK
     Route: 048

REACTIONS (1)
  - Foreign body sensation in eyes [Unknown]
